FAERS Safety Report 20802640 (Version 1)
Quarter: 2022Q2

REPORT INFORMATION
  Report Type: Spontaneous
  Country: US (occurrence: None)
  Receive Date: 20220509
  Receipt Date: 20220509
  Transmission Date: 20220721
  Serious: No
  Sender: FDA-Public Use
  Company Number: None

PATIENT
  Age: 70 Year
  Sex: Male
  Weight: 98 kg

DRUGS (1)
  1. ALIROCUMAB [Suspect]
     Active Substance: ALIROCUMAB
     Indication: Hyperlipidaemia
     Dates: start: 20200421, end: 20220329

REACTIONS (4)
  - Blister [None]
  - Herpes simplex [None]
  - Erythema multiforme [None]
  - Drug eruption [None]

NARRATIVE: CASE EVENT DATE: 20220329
